FAERS Safety Report 22207190 (Version 1)
Quarter: 2023Q2

REPORT INFORMATION
  Report Type: Spontaneous
  Country: US (occurrence: None)
  Receive Date: 20230412
  Receipt Date: 20230412
  Transmission Date: 20230722
  Serious: No
  Sender: FDA-Public Use
  Company Number: None

PATIENT
  Age: 83 Year
  Sex: Male

DRUGS (1)
  1. TALTZ [Suspect]
     Active Substance: IXEKIZUMAB
     Indication: Ankylosing spondylitis
     Dosage: FREQUENCY : MONTHLY;?
     Route: 058
     Dates: start: 202211

REACTIONS (2)
  - Nasopharyngitis [None]
  - Therapy interrupted [None]
